FAERS Safety Report 7118266-6 (Version None)
Quarter: 2010Q4

REPORT INFORMATION
  Report Type: 
  Country: None (occurrence: None)
  Receive Date: 20101123
  Receipt Date: 20101111
  Transmission Date: 20110411
  Serious: No
  Sender: FDA-Public Use
  Company Number: KR-JNJFOC-20101105138

PATIENT
  Sex: Female

DRUGS (1)
  1. DURAGESIC-100 [Suspect]
     Indication: PAIN MANAGEMENT
     Dosage: HALF A PATCH OF 12.5UG/HR
     Route: 062

REACTIONS (4)
  - APPLICATION SITE PRURITUS [None]
  - CONSTIPATION [None]
  - DIZZINESS [None]
  - DRUG ADMINISTRATION ERROR [None]
